FAERS Safety Report 6544121-6 (Version None)
Quarter: 2010Q1

REPORT INFORMATION
  Report Type: 
  Country: None (occurrence: None)
  Receive Date: 20100120
  Receipt Date: 20100119
  Transmission Date: 20100710
  Serious: Yes (Death, Hospitalization)
  Sender: FDA-Public Use
  Company Number: BR-B.I. PHARMACEUTICALS,INC./RIDGEFIELD-2010-BR-00068BR

PATIENT
  Sex: Male

DRUGS (2)
  1. SPIRIVA [Suspect]
     Indication: CHRONIC OBSTRUCTIVE PULMONARY DISEASE
     Dosage: 18 MCG
     Route: 055
  2. MEDICATION NOT FURTHER SPECIFIED [Concomitant]
     Dosage: NR

REACTIONS (3)
  - CARDIAC ARREST [None]
  - GASTROINTESTINAL NECROSIS [None]
  - RENAL FAILURE [None]
